FAERS Safety Report 15741714 (Version 1)
Quarter: 2018Q4

REPORT INFORMATION
  Report Type: Spontaneous
  Country: ES (occurrence: ES)
  Receive Date: 20181219
  Receipt Date: 20181219
  Transmission Date: 20190205
  Serious: Yes (Hospitalization)
  Sender: FDA-Public Use
  Company Number: ES-BAYER-2018-237517

PATIENT
  Age: 85 Year
  Sex: Female

DRUGS (6)
  1. NOLOTIL [METAMIZOLE MAGNESIUM] [Concomitant]
     Active Substance: METAMIZOLE MAGNESIUM
     Dosage: 575 MG
     Route: 048
     Dates: start: 20170416, end: 20180216
  2. AXURA [Concomitant]
     Active Substance: MEMANTINE HYDROCHLORIDE
     Indication: DEMENTIA ALZHEIMER^S TYPE
     Dosage: 20 MG
     Route: 048
  3. RANITIDINA [RANITIDINE] [Concomitant]
     Dosage: 150 MG, UNK
     Route: 048
     Dates: start: 20170416, end: 20180312
  4. PARACETAMOL [Concomitant]
     Active Substance: ACETAMINOPHEN
     Route: 048
     Dates: start: 20170416, end: 20180216
  5. SIMVASTATINA TARBIS [Concomitant]
     Dosage: 20 MG, UNK
     Route: 048
     Dates: start: 20170416, end: 20180312
  6. ADIRO 100 MG [Suspect]
     Active Substance: ASPIRIN
     Dosage: 100 MG, UNK
     Route: 048
     Dates: start: 20170825, end: 20180312

REACTIONS (1)
  - Iron deficiency anaemia [Recovered/Resolved]

NARRATIVE: CASE EVENT DATE: 20180215
